FAERS Safety Report 24287662 (Version 3)
Quarter: 2024Q4

REPORT INFORMATION
  Report Type: Spontaneous
  Country: US (occurrence: US)
  Receive Date: 20240905
  Receipt Date: 20241002
  Transmission Date: 20250114
  Serious: No
  Sender: MYLAN
  Company Number: US-MYLANLABS-2024M1080258

PATIENT
  Age: 70 Year
  Sex: Female
  Weight: 75.74 kg

DRUGS (32)
  1. TYRVAYA [Suspect]
     Active Substance: VARENICLINE TARTRATE
     Indication: Dry eye
     Dosage: UNK, BID
     Route: 045
     Dates: start: 20240821, end: 20240827
  2. ZOLOFT [Concomitant]
     Active Substance: SERTRALINE HYDROCHLORIDE
     Dosage: UNK (TAKE 1 AND HALF TABLET BY MOUTH EVERY MORNING)
     Route: 048
  3. VITAMIN B12 [Concomitant]
     Active Substance: CYANOCOBALAMIN
     Dosage: 1 DOSAGE FORM, QD (TAKE 1 TABLET BY MOUTH EVERYDAY)
     Route: 065
  4. VITAMIN C [Concomitant]
     Active Substance: ASCORBIC ACID
     Dosage: UNK
     Route: 065
  5. VITAMIN C [Concomitant]
     Active Substance: ASCORBIC ACID
     Dosage: 1000 MILLIGRAM, QD (TAKE 1000 MG TABLET BY MOUTH EVERY MORNING)
     Route: 048
  6. LUTEIN [Concomitant]
     Active Substance: LUTEIN
     Dosage: UNK
     Route: 065
  7. LUTEIN [Concomitant]
     Active Substance: LUTEIN
     Dosage: 25 MILLIGRAM, QD (EVERY MORNING)
     Route: 048
  8. VITAMIN D3 [Concomitant]
     Active Substance: CHOLECALCIFEROL
     Dosage: UNK
     Route: 065
  9. CALCIUM [Concomitant]
     Active Substance: CALCIUM
     Dosage: UNK
     Route: 065
  10. RESTASIS [Concomitant]
     Active Substance: CYCLOSPORINE
     Dosage: 1 GTT DROPS, BID (PRN)
     Route: 047
  11. ADVAIR HFA [Concomitant]
     Active Substance: FLUTICASONE PROPIONATE\SALMETEROL XINAFOATE
     Dosage: UNK, BID (1 PUFF EVERY 12 HOURS)
     Route: 055
  12. FOLIC ACID [Concomitant]
     Active Substance: FOLIC ACID
     Dosage: 400 MICROGRAM (TAKE 400 MCG BY MOUTH EVERY MORNING)
     Route: 048
  13. NEURONTIN [Concomitant]
     Active Substance: GABAPENTIN
     Dosage: 100 MILLIGRAM, QD
     Route: 048
  14. ACULAR [Concomitant]
     Active Substance: KETOROLAC TROMETHAMINE
     Dosage: 1 DROP, QID (OPTHALMIC SOLUTION, 1 DROP BOTH EYES FOUR TIMES A DAY)
     Route: 047
  15. PRINIVIL [Concomitant]
     Active Substance: LISINOPRIL
     Dosage: 10 MILLIGRAM, QD (TAKE 1 TABLET BY MOUTH EVERYDAY)
     Route: 048
  16. MOBIC [Concomitant]
     Active Substance: MELOXICAM
     Dosage: 15 MILLIGRAM, QD (WITH FOOD)
     Route: 048
  17. ALBUTEROL [Concomitant]
     Active Substance: ALBUTEROL
     Indication: Cough
     Dosage: UNK QID (INHALE 2 PUFFS EVERY 6 HOURS)
     Route: 055
  18. AMOXIL [Concomitant]
     Active Substance: AMOXICILLIN
     Dosage: 4 DOSAGE FORM (PRIOR TO SURGERY)
     Route: 048
  19. AMOXICILLIN [Concomitant]
     Active Substance: AMOXICILLIN
     Dosage: UNK (2 GM FOR PILLS 30 MINUTES TO DENTAL PROCEDURE)
     Route: 065
  20. ASPIRIN [Concomitant]
     Active Substance: ASPIRIN
     Dosage: 81 MILLIGRAM, QD (TAKE 81 MG EVERY MORNING)
     Route: 048
  21. CALTRATE WITH VITAMIN D [Concomitant]
     Active Substance: CALCIUM CARBONATE\CHOLECALCIFEROL
     Dosage: 1500 MG/400 UNIT PER TABLET
     Route: 048
  22. ZYRTEC [Concomitant]
     Active Substance: CETIRIZINE HYDROCHLORIDE
     Dosage: UNK (TAKE 1 TABLET BY MOUTH EVERY MORNING)
     Route: 048
  23. FLEXERIL [Concomitant]
     Active Substance: CYCLOBENZAPRINE HYDROCHLORIDE
     Indication: Muscle spasms
     Dosage: 5 MG BY MOUTH 3 TIMES A DAY AS NEEDED
     Route: 048
  24. FML [Concomitant]
     Active Substance: FLUOROMETHOLONE
     Dosage: 1 GTT DROPS, QID (1 DROP INTO BOTH EYES FOUR TIME A DAY FOR WEEK)
     Route: 047
  25. ATIVAN [Concomitant]
     Active Substance: LORAZEPAM
     Indication: Anxiety
     Dosage: 0.5 MILLIGRAM, BID (TAKE 1 TABLET BY MOUTH EVERY 12 HOURS)
     Route: 048
  26. CANNABIS SATIVA SUBSP. INDICA TOP [Concomitant]
     Active Substance: CANNABIS SATIVA SUBSP. INDICA TOP
     Dosage: 1 DOSE FREQUENCY PM
     Route: 048
  27. SINGULAIR [Concomitant]
     Active Substance: MONTELUKAST SODIUM
     Dosage: 10 MILLIGRAM, QD (TAKE 1 TABLET BY MOUTH EVERYDAY AT BEDTIME)
     Route: 048
  28. NITROGLYCERIN [Concomitant]
     Active Substance: NITROGLYCERIN
     Indication: Chest pain
     Dosage: 0.4 MILLIGRAM (PLACE 1 TABLET UNDER THE TONGUE AS NEEDED)
     Route: 060
  29. PRED FORTE [Concomitant]
     Active Substance: PREDNISOLONE ACETATE
     Dosage: 2 GTT DROPS, PRN (2 DROPS IN BOTH EYES AS NEEDED)
     Route: 047
  30. DESYREL [Concomitant]
     Active Substance: TRAZODONE HYDROCHLORIDE
     Dosage: UNK (TAKE 1 AND HALF TABLET BY MOUTH AT BED TIME)
     Route: 048
  31. EVOLOCUMAB [Concomitant]
     Active Substance: EVOLOCUMAB
     Dosage: 140 MG/ML EVERY 14 DAYS
     Route: 065
  32. KENALOG [Concomitant]
     Active Substance: TRIAMCINOLONE ACETONIDE
     Dosage: TOPICAL BID(TWICE A DAY)

REACTIONS (3)
  - Rash [Not Recovered/Not Resolved]
  - Rash pruritic [Unknown]
  - Urticaria [Unknown]

NARRATIVE: CASE EVENT DATE: 20240826
